FAERS Safety Report 15551230 (Version 1)
Quarter: 2018Q4

REPORT INFORMATION
  Report Type: Spontaneous
  Country: US (occurrence: US)
  Receive Date: 20181025
  Receipt Date: 20181025
  Transmission Date: 20190205
  Serious: Yes (Disabling, Other)
  Sender: FDA-Public Use
  Company Number: None

PATIENT
  Age: 33 Year
  Sex: Female
  Weight: 48.24 kg

DRUGS (1)
  1. PARAGARD T 380A [Suspect]
     Active Substance: COPPER
     Indication: CONTRACEPTION
     Route: 067
     Dates: start: 20180219, end: 20181024

REACTIONS (23)
  - Peripheral coldness [None]
  - Contusion [None]
  - Stress [None]
  - Speech disorder [None]
  - Depression [None]
  - Anxiety [None]
  - Skin mass [None]
  - Heart rate increased [None]
  - Premenstrual syndrome [None]
  - Disturbance in attention [None]
  - Migraine [None]
  - Mood swings [None]
  - Marital problem [None]
  - Dry skin [None]
  - Abdominal distension [None]
  - Suppressed lactation [None]
  - Amnesia [None]
  - Obsessive thoughts [None]
  - Headache [None]
  - Product complaint [None]
  - Fatigue [None]
  - Weight loss poor [None]
  - Feeling abnormal [None]

NARRATIVE: CASE EVENT DATE: 20181024
